FAERS Safety Report 5057232-1 (Version None)
Quarter: 2006Q3

REPORT INFORMATION
  Report Type: 
  Country: None (occurrence: None)
  Receive Date: 20060721
  Receipt Date: 20050621
  Transmission Date: 20061208
  Serious: No
  Sender: FDA-Public Use
  Company Number: US-GLAXOSMITHKLINE-A0563596A

PATIENT
  Age: 53 Year
  Sex: Female

DRUGS (5)
  1. AVANDIA [Suspect]
     Dosage: 8MG PER DAY
     Route: 048
     Dates: start: 20050614
  2. INSULIN [Concomitant]
  3. FEMARA [Concomitant]
  4. LORAZEPAM [Concomitant]
  5. IBUPROFEN [Concomitant]

REACTIONS (1)
  - HEADACHE [None]
